FAERS Safety Report 19747570 (Version 2)
Quarter: 2022Q2

REPORT INFORMATION
  Report Type: Report from Study
  Country: IL (occurrence: IL)
  Receive Date: 20210826
  Receipt Date: 20220422
  Transmission Date: 20220721
  Serious: Yes (Other)
  Sender: FDA-Public Use
  Company Number: IL-SA-SAC20210825000409

PATIENT
  Age: 51 Year
  Sex: Male

DRUGS (1)
  1. DUPILUMAB [Suspect]
     Active Substance: DUPILUMAB
     Indication: Asthma
     Dosage: 300 MG, QOW
     Route: 058
     Dates: start: 20210114

REACTIONS (5)
  - Seizure [Not Recovered/Not Resolved]
  - Impatience [Not Recovered/Not Resolved]
  - Therapeutic response decreased [Unknown]
  - Product use issue [Unknown]
  - Inappropriate schedule of product administration [Unknown]
